FAERS Safety Report 5261606-3 (Version None)
Quarter: 2007Q1

REPORT INFORMATION
  Report Type: 
  Country: None (occurrence: None)
  Receive Date: 20061218
  Receipt Date: 20061010
  Transmission Date: 20070707
  Serious: No
  Sender: FDA-Public Use
  Company Number: US200610001940

PATIENT
  Age: 57 Year
  Sex: Male

DRUGS (6)
  1. CIALIS [Suspect]
     Indication: ERECTILE DYSFUNCTION
     Dosage: 20 MG
     Dates: start: 20061003
  2. LISINOPRIL [Concomitant]
  3. NORVASC [Concomitant]
  4. ZOLMITRIPTAN (ZOLMITRIPTAN) [Concomitant]
  5. GLUCOPHAGE [Concomitant]
  6. LAMICTAL [Concomitant]

REACTIONS (1)
  - DRUG INEFFECTIVE [None]
